FAERS Safety Report 18995697 (Version 3)
Quarter: 2021Q3

REPORT INFORMATION
  Report Type: Spontaneous
  Country: US (occurrence: US)
  Receive Date: 20210311
  Receipt Date: 20210903
  Transmission Date: 20211014
  Serious: No
  Sender: FDA-Public Use
  Company Number: US-DECIPHERA PHARMACEUTICALS LLC-2021US000100

PATIENT
  Sex: Male

DRUGS (2)
  1. QINLOCK [Suspect]
     Active Substance: RIPRETINIB
     Indication: GASTROINTESTINAL STROMAL TUMOUR
     Dosage: 150 MILLIGRAM, QD
     Route: 048
     Dates: start: 20210123
  2. COVID?19 VACCINE [Concomitant]
     Indication: COVID-19
     Dosage: UNK
     Route: 065

REACTIONS (9)
  - Product dose omission issue [Unknown]
  - Blood pressure increased [Not Recovered/Not Resolved]
  - Peripheral swelling [Not Recovered/Not Resolved]
  - Pain [Unknown]
  - Musculoskeletal disorder [Unknown]
  - Conjunctivitis [Unknown]
  - Muscle spasms [Recovered/Resolved]
  - Joint lock [Unknown]
  - Weight bearing difficulty [Unknown]
